FAERS Safety Report 19733366 (Version 2)
Quarter: 2021Q3

REPORT INFORMATION
  Report Type: Spontaneous
  Country: GB (occurrence: GB)
  Receive Date: 20210823
  Receipt Date: 20210902
  Transmission Date: 20211014
  Serious: Yes (Hospitalization, Other)
  Sender: FDA-Public Use
  Company Number: GB-AMGEN-GBRNI2021127232

PATIENT
  Age: 28 Year
  Sex: Female

DRUGS (74)
  1. CODEINE PHOSPHATE [Concomitant]
     Active Substance: CODEINE PHOSPHATE
     Dosage: 30 MILLIGRAM
     Route: 048
     Dates: start: 20180208, end: 20180322
  2. IBUPROFEN. [Concomitant]
     Active Substance: IBUPROFEN
     Dosage: 400 MILLIGRAM
     Route: 048
  3. TINZAPARIN [Concomitant]
     Active Substance: TINZAPARIN
     Indication: DEEP VEIN THROMBOSIS
     Dosage: 25000 INTERNATIONAL UNIT, QD
     Route: 058
     Dates: start: 20190911, end: 20190917
  4. PERTUZUMAB. [Suspect]
     Active Substance: PERTUZUMAB
     Indication: BREAST CANCER METASTATIC
     Dosage: UNK
     Route: 042
     Dates: start: 20150908
  5. METHOTREXATE. [Suspect]
     Active Substance: METHOTREXATE
     Indication: BREAST CANCER METASTATIC
     Dosage: 10 MILLIGRAM
     Route: 042
  6. DEXAMETHASONE. [Concomitant]
     Active Substance: DEXAMETHASONE
     Indication: VOMITING
     Dosage: 8 MILLIGRAM
     Route: 048
     Dates: start: 20190314, end: 20190317
  7. DEXAMETHASONE. [Concomitant]
     Active Substance: DEXAMETHASONE
     Dosage: 10 MILLIGRAM
     Route: 048
     Dates: start: 20190920, end: 20191023
  8. GABAPENTIN. [Concomitant]
     Active Substance: GABAPENTIN
     Dosage: 600 MILLIGRAM
     Route: 048
     Dates: start: 20191019, end: 20191023
  9. DESUNIN [Concomitant]
     Active Substance: CHOLECALCIFEROL
     Dosage: 800 INTERNATIONAL UNIT
     Route: 048
     Dates: start: 20160323
  10. DALTEPARIN [Concomitant]
     Active Substance: DALTEPARIN
     Dosage: 5000 INTERNATIONAL UNIT
     Route: 058
     Dates: start: 20180201, end: 20180201
  11. LAXIDO [Concomitant]
     Active Substance: POLYETHYLENE GLYCOL 3350\POTASSIUM CHLORIDE\SODIUM BICARBONATE\SODIUM CHLORIDE
     Dosage: 7.5 MILLIGRAM
     Route: 048
     Dates: start: 20171122
  12. TRASTUZUMAB EMTANSINE [Suspect]
     Active Substance: ADO-TRASTUZUMAB EMTANSINE
     Indication: BREAST CANCER METASTATIC
     Dosage: 600 MILLIGRAM, QWK
     Route: 065
     Dates: start: 20150817, end: 20150817
  13. DEXAMETHASONE. [Concomitant]
     Active Substance: DEXAMETHASONE
     Dosage: 8 MILLIGRAM
     Route: 048
     Dates: start: 20190212, end: 20190219
  14. DEXAMETHASONE. [Concomitant]
     Active Substance: DEXAMETHASONE
     Dosage: 8 MILLIGRAM
     Route: 048
     Dates: start: 20150819, end: 20150821
  15. DEXAMETHASONE. [Concomitant]
     Active Substance: DEXAMETHASONE
     Dosage: 8 MILLIGRAM
     Route: 048
     Dates: start: 20190911, end: 20190919
  16. DEXAMETHASONE. [Concomitant]
     Active Substance: DEXAMETHASONE
     Dosage: 8 MILLIGRAM
     Route: 048
     Dates: start: 20190306, end: 20190309
  17. GABAPENTIN. [Concomitant]
     Active Substance: GABAPENTIN
     Dosage: 200 MILLIGRAM
     Route: 048
     Dates: start: 20190911, end: 20191009
  18. METOCLOPRAMIDE. [Concomitant]
     Active Substance: METOCLOPRAMIDE
     Indication: VOMITING
     Dosage: 10 MILLIGRAM
     Route: 042
     Dates: start: 20150818, end: 20150818
  19. DIAZEPAM. [Concomitant]
     Active Substance: DIAZEPAM
     Indication: SEDATION
     Dosage: 2 MILLIGRAM
     Route: 048
     Dates: start: 20150708
  20. CYCLIZINE [Concomitant]
     Active Substance: CYCLIZINE
     Dosage: 50 MILLIGRAM
     Route: 048
     Dates: start: 20180208, end: 20191009
  21. ADCAL [CALCIUM CARBONATE;COLECALCIFEROL] [Concomitant]
     Route: 048
     Dates: start: 20160202
  22. TRASTUZUMAB. [Suspect]
     Active Substance: TRASTUZUMAB
     Indication: BREAST CANCER METASTATIC
     Dosage: 600 MILLIGRAM, QWK
     Route: 042
     Dates: start: 20150817, end: 20150817
  23. TRASTUZUMAB. [Suspect]
     Active Substance: TRASTUZUMAB
     Dosage: UNK
     Route: 042
     Dates: start: 20160921, end: 20170530
  24. TRASTUZUMAB EMTANSINE [Suspect]
     Active Substance: ADO-TRASTUZUMAB EMTANSINE
     Dosage: 450 MILLIGRAM, QWK
     Route: 065
     Dates: start: 20150908, end: 20160831
  25. ERIBULIN MESYLATE [Suspect]
     Active Substance: ERIBULIN MESYLATE
     Indication: BREAST CANCER METASTATIC
     Dosage: UNK
     Route: 042
     Dates: start: 20190429, end: 20190911
  26. DEXAMETHASONE. [Concomitant]
     Active Substance: DEXAMETHASONE
     Dosage: 8 MILLIGRAM
     Route: 048
     Dates: start: 20150909, end: 20150911
  27. LETROZOLE. [Concomitant]
     Active Substance: LETROZOLE
     Dosage: 2.5 MILLIGRAM
     Dates: start: 20171129
  28. LANSOPRAZOLE. [Concomitant]
     Active Substance: LANSOPRAZOLE
     Indication: EPIGASTRIC DISCOMFORT
     Dosage: 30 MILLIGRAM
     Route: 048
     Dates: start: 20180306, end: 20180322
  29. ZOLEDRONIC ACID. [Concomitant]
     Active Substance: ZOLEDRONIC ACID
     Dosage: 4 MILLIGRAM
     Route: 042
     Dates: start: 20150708, end: 20150708
  30. NAPROXEN. [Concomitant]
     Active Substance: NAPROXEN
     Dosage: 250 MILLIGRAM
     Route: 048
     Dates: start: 20190911
  31. TRASTUZUMAB EMTANSINE [Suspect]
     Active Substance: ADO-TRASTUZUMAB EMTANSINE
     Dosage: 260 MILLIGRAM, QWK
     Route: 042
     Dates: start: 20160921, end: 20170531
  32. TRASTUZUMAB EMTANSINE [Suspect]
     Active Substance: ADO-TRASTUZUMAB EMTANSINE
     Dosage: 600 MILLIGRAM, QWK
     Route: 065
     Dates: start: 20170719, end: 20190911
  33. COLECALCIFEROL [Concomitant]
     Active Substance: CHOLECALCIFEROL
     Dosage: 1.5 GRAM, QD
     Route: 048
     Dates: start: 20171122
  34. SENNA ALEXANDRINA [Concomitant]
     Active Substance: SENNA LEAF
     Dosage: 7.5 MILLIGRAM
     Route: 048
     Dates: start: 20171122
  35. GABAPENTIN. [Concomitant]
     Active Substance: GABAPENTIN
     Dosage: 300 MILLIGRAM
     Route: 048
     Dates: start: 20191011, end: 20191018
  36. LAXIDO [Concomitant]
     Active Substance: POLYETHYLENE GLYCOL 3350\POTASSIUM CHLORIDE\SODIUM BICARBONATE\SODIUM CHLORIDE
     Indication: CONSTIPATION
     Dosage: UNK
  37. ZOLEDRONIC ACID. [Concomitant]
     Active Substance: ZOLEDRONIC ACID
     Dosage: 3 MILLIGRAM
     Route: 042
     Dates: start: 20150929, end: 20150929
  38. TRASTUZUMAB. [Suspect]
     Active Substance: TRASTUZUMAB
     Dosage: 600 MILLIGRAM, QWK
     Route: 042
     Dates: start: 20170719, end: 20190911
  39. DOCETAXEL. [Suspect]
     Active Substance: DOCETAXEL
     Indication: BREAST CANCER METASTATIC
     Dosage: 140 MILLIGRAM, QWK
     Route: 042
     Dates: start: 20150818, end: 20151201
  40. FILGRASTIM [Concomitant]
     Active Substance: FILGRASTIM
     Dosage: 480 MICROGRAM
     Route: 058
     Dates: start: 20150909, end: 20150913
  41. PARACETAMOL [Concomitant]
     Active Substance: ACETAMINOPHEN
     Dosage: 1 MILLIGRAM
     Route: 048
     Dates: start: 20160921, end: 20180322
  42. PARACETAMOL [Concomitant]
     Active Substance: ACETAMINOPHEN
     Dosage: 1 MILLIGRAM
     Route: 048
     Dates: start: 20190911
  43. TRASTUZUMAB. [Suspect]
     Active Substance: TRASTUZUMAB
     Dosage: 450 MILLIGRAM, QWK
     Route: 042
     Dates: start: 20150908, end: 20160831
  44. ZOMORPH [Concomitant]
     Active Substance: MORPHINE SULFATE
     Indication: PAIN
     Dosage: 25 MILLIGRAM
     Dates: start: 20191008
  45. FENTANYL. [Concomitant]
     Active Substance: FENTANYL
     Indication: PAIN
  46. GABAPENTIN. [Concomitant]
     Active Substance: GABAPENTIN
     Dosage: 300 MILLIGRAM
     Route: 048
     Dates: start: 20191009, end: 20191011
  47. METOCLOPRAMIDE. [Concomitant]
     Active Substance: METOCLOPRAMIDE
     Dosage: 10 MILLIGRAM
     Route: 042
     Dates: start: 20190429
  48. DICLOFENAC [Concomitant]
     Active Substance: DICLOFENAC
     Route: 061
     Dates: start: 20181107
  49. MORPHINE [Concomitant]
     Active Substance: MORPHINE
     Dosage: 10 MILLIGRAM
     Dates: start: 20191021
  50. LANSOPRAZOLE. [Concomitant]
     Active Substance: LANSOPRAZOLE
     Dosage: 30 MILLIGRAM
     Route: 048
     Dates: start: 20190911
  51. IBUPROFEN. [Concomitant]
     Active Substance: IBUPROFEN
     Indication: PAIN
     Dosage: 400 MILLIGRAM
     Route: 048
     Dates: start: 20150708, end: 20180306
  52. DOCUSATE [Concomitant]
     Active Substance: DOCUSATE
     Indication: CONSTIPATION
     Dosage: 100 MILLIGRAM
     Route: 048
     Dates: start: 20191009
  53. TAMOXIFEN [Concomitant]
     Active Substance: TAMOXIFEN
     Indication: BREAST CANCER
     Dosage: 20 MILLIGRAM, QD
     Route: 048
     Dates: start: 20160509, end: 20160921
  54. EPIRUBICIN [Suspect]
     Active Substance: EPIRUBICIN
     Indication: BREAST CANCER METASTATIC
     Dosage: 170 MILLIGRAM, QWK
     Route: 042
     Dates: start: 20150724, end: 20150724
  55. CAPECITABINE. [Suspect]
     Active Substance: CAPECITABINE
     Dosage: 1800 MILLIGRAM
     Route: 048
     Dates: start: 20170719, end: 20170830
  56. FILGRASTIM [Concomitant]
     Active Substance: FILGRASTIM
     Dosage: 480 MICROGRAM
     Route: 058
     Dates: start: 20150819, end: 20150823
  57. DEXAMETHASONE. [Concomitant]
     Active Substance: DEXAMETHASONE
     Dosage: 6 MILLIGRAM
     Route: 048
     Dates: start: 20191023, end: 20191031
  58. SODIUM VALPROATE [Concomitant]
     Active Substance: VALPROATE SODIUM
     Indication: HEADACHE
     Dosage: 200 MILLIGRAM
     Route: 048
     Dates: start: 20191023
  59. AMITRIPTYLINE HCL [Concomitant]
     Active Substance: AMITRIPTYLINE
     Dosage: 10 MILLIGRAM
     Route: 048
     Dates: start: 20180111, end: 20180322
  60. COCODAMOL [Concomitant]
     Active Substance: ACETAMINOPHEN\CODEINE PHOSPHATE
     Dosage: 8 MILLIGRAM
     Route: 048
     Dates: start: 20181107
  61. CYCLOPHOSPHAMIDE. [Suspect]
     Active Substance: CYCLOPHOSPHAMIDE
     Indication: BREAST CANCER METASTATIC
     Dosage: 1000 MILLIGRAM, QWK
     Route: 042
     Dates: start: 20191112
  62. CAPECITABINE. [Suspect]
     Active Substance: CAPECITABINE
     Indication: BREAST CANCER METASTATIC
     Dosage: 1450 MILLIGRAM
     Route: 048
     Dates: start: 20170830, end: 20171101
  63. XGEVA [Concomitant]
     Active Substance: DENOSUMAB
     Indication: PRODUCT USED FOR UNKNOWN INDICATION
     Dosage: 120 MILLIGRAM
     Route: 058
     Dates: start: 20160405
  64. DEXAMETHASONE. [Concomitant]
     Active Substance: DEXAMETHASONE
     Dosage: 8 MILLIGRAM
     Route: 048
     Dates: start: 20190220, end: 20190227
  65. DEXAMETHASONE. [Concomitant]
     Active Substance: DEXAMETHASONE
     Dosage: 8 MILLIGRAM
     Route: 048
     Dates: start: 20190310, end: 20190313
  66. DEXAMETHASONE. [Concomitant]
     Active Substance: DEXAMETHASONE
     Dosage: 4 MILLIGRAM
     Route: 048
     Dates: start: 20191031
  67. DEXAMETHASONE. [Concomitant]
     Active Substance: DEXAMETHASONE
     Dosage: 8 MILLIGRAM
     Route: 048
     Dates: start: 20190429, end: 20190429
  68. GABAPENTIN. [Concomitant]
     Active Substance: GABAPENTIN
     Dosage: 900 MILLIGRAM
     Route: 048
     Dates: start: 20191023
  69. DESUNIN [Concomitant]
     Active Substance: CHOLECALCIFEROL
     Indication: VITAMIN D DECREASED
     Dosage: 800 INTERNATIONAL UNIT
     Route: 048
     Dates: start: 20150722, end: 20150924
  70. ORAMORPH SR SUSTAINED RELEASE [Concomitant]
     Active Substance: MORPHINE SULFATE
     Indication: PAIN
     Dosage: 10 MILLIGRAM
     Route: 048
     Dates: start: 20150708
  71. ORAMORPH SR SUSTAINED RELEASE [Concomitant]
     Active Substance: MORPHINE SULFATE
     Dosage: 7.5 MILLIGRAM
     Route: 048
     Dates: start: 20190911
  72. LORAZEPAM. [Concomitant]
     Active Substance: LORAZEPAM
     Dosage: 0.5 MILLIGRAM
     Route: 048
     Dates: start: 20180405
  73. CEFOTAXIME [Concomitant]
     Active Substance: CEFOTAXIME SODIUM
     Indication: PYREXIA
     Dosage: 1.2 MILLIGRAM
     Route: 042
     Dates: start: 20191023, end: 20191027
  74. GOSERELIN [Concomitant]
     Active Substance: GOSERELIN
     Dosage: 3.6 MILLIGRAM
     Route: 058
     Dates: start: 20171101

REACTIONS (2)
  - Off label use [Unknown]
  - Sepsis [Recovered/Resolved]

NARRATIVE: CASE EVENT DATE: 20191216
